FAERS Safety Report 8760862 (Version 2)
Quarter: 2012Q4

REPORT INFORMATION
  Report Type: 
  Country: GB (occurrence: GB)
  Receive Date: 20120830
  Receipt Date: 20120830
  Transmission Date: 20130627
  Serious: Yes (Hospitalization, Other)
  Sender: FDA-Public Use
  Company Number: GB-ACCORD-014316

PATIENT
  Age: 83 Year
  Sex: Male

DRUGS (6)
  1. DONEPEZIL [Suspect]
     Indication: ALZHEIMER^S DISEASE
     Route: 048
     Dates: start: 20120713, end: 201207
  2. ASPIRIN [Concomitant]
  3. AMLODIPINE [Concomitant]
  4. QUININE [Concomitant]
  5. PRAVASTATIN [Concomitant]
  6. CANDESARTAN [Concomitant]

REACTIONS (4)
  - Fall [Recovering/Resolving]
  - Bradycardia [Recovering/Resolving]
  - Diarrhoea [Recovering/Resolving]
  - Syncope [Recovering/Resolving]
